FAERS Safety Report 15637961 (Version 1)
Quarter: 2018Q4

REPORT INFORMATION
  Report Type: Spontaneous
  Country: US (occurrence: US)
  Receive Date: 20181120
  Receipt Date: 20181120
  Transmission Date: 20190205
  Serious: No
  Sender: FDA-Public Use
  Company Number: US-JNJFOC-20180710734

PATIENT
  Age: 68 Year
  Sex: Male

DRUGS (42)
  1. IMBRUVICA [Suspect]
     Active Substance: IBRUTINIB
     Indication: CHRONIC LYMPHOCYTIC LEUKAEMIA
     Route: 048
     Dates: start: 20180120
  2. PLAVIX [Concomitant]
     Active Substance: CLOPIDOGREL BISULFATE
  3. IMBRUVICA [Suspect]
     Active Substance: IBRUTINIB
     Indication: CHRONIC LYMPHOCYTIC LEUKAEMIA
     Route: 048
     Dates: start: 20180111, end: 20180112
  4. DILAUDID [Concomitant]
     Active Substance: HYDROMORPHONE HYDROCHLORIDE
  5. BENADRYL [Concomitant]
     Active Substance: DIPHENHYDRAMINE HYDROCHLORIDE
  6. REFRESH [Concomitant]
     Active Substance: UNSPECIFIED INGREDIENT
     Indication: DRY EYE
  7. ZOLOFT [Concomitant]
     Active Substance: SERTRALINE HYDROCHLORIDE
  8. VALIUM [Concomitant]
     Active Substance: DIAZEPAM
     Dates: start: 201711
  9. FISH OIL [Concomitant]
     Active Substance: FISH OIL
  10. OMEGA-3 FATTY ACIDS [Concomitant]
     Active Substance: OMEGA-3 FATTY ACIDS
  11. CALCIUM CARBONATE. [Concomitant]
     Active Substance: CALCIUM CARBONATE
  12. TENORMIN [Concomitant]
     Active Substance: ATENOLOL
  13. DULERA [Concomitant]
     Active Substance: FORMOTEROL FUMARATE DIHYDRATE\MOMETASONE FUROATE
  14. VITAMIN B3 [Concomitant]
     Active Substance: NIACIN
  15. COLLAGENASE SANTYL [Concomitant]
     Active Substance: COLLAGENASE CLOSTRIDIUM HISTOLYTICUM
  16. DIVALPROEX [Concomitant]
     Active Substance: DIVALPROEX SODIUM
  17. FOLIC ACID. [Concomitant]
     Active Substance: FOLIC ACID
  18. IMBRUVICA [Suspect]
     Active Substance: IBRUTINIB
     Indication: CHRONIC LYMPHOCYTIC LEUKAEMIA
     Route: 048
     Dates: start: 20170508, end: 20170618
  19. ZOCOR [Concomitant]
     Active Substance: SIMVASTATIN
  20. ASCORBIC ACID. [Concomitant]
     Active Substance: ASCORBIC ACID
  21. ACETAMINOPHEN AND CODEINE [Concomitant]
     Active Substance: ACETAMINOPHEN\CODEINE PHOSPHATE
  22. IMBRUVICA [Suspect]
     Active Substance: IBRUTINIB
     Indication: CHRONIC LYMPHOCYTIC LEUKAEMIA
     Route: 048
     Dates: start: 20170307, end: 20170508
  23. ASPIRIN. [Concomitant]
     Active Substance: ASPIRIN
  24. LISINOPRIL. [Concomitant]
     Active Substance: LISINOPRIL
  25. MULTIVITAMINS [Concomitant]
     Active Substance: VITAMINS
  26. ZINC. [Concomitant]
     Active Substance: ZINC
  27. BACTRIM [Concomitant]
     Active Substance: SULFAMETHOXAZOLE\TRIMETHOPRIM
  28. ALBUTEROL HFA [Concomitant]
     Active Substance: ALBUTEROL SULFATE
  29. LASIX [Concomitant]
     Active Substance: FUROSEMIDE
     Indication: FLUID RETENTION
  30. IMBRUVICA [Suspect]
     Active Substance: IBRUTINIB
     Indication: CHRONIC LYMPHOCYTIC LEUKAEMIA
     Route: 048
     Dates: start: 20170618, end: 20170915
  31. IMBRUVICA [Suspect]
     Active Substance: IBRUTINIB
     Indication: CHRONIC LYMPHOCYTIC LEUKAEMIA
     Route: 048
     Dates: start: 20171217, end: 20171228
  32. IMBRUVICA [Suspect]
     Active Substance: IBRUTINIB
     Indication: CHRONIC LYMPHOCYTIC LEUKAEMIA
     Route: 048
     Dates: start: 20161223, end: 20170307
  33. AZELASTINE HYDROCHLORIDE. [Concomitant]
     Active Substance: AZELASTINE HYDROCHLORIDE
     Route: 065
  34. CELEBREX [Concomitant]
     Active Substance: CELECOXIB
  35. CARDURA [Concomitant]
     Active Substance: DOXAZOSIN MESYLATE
  36. NASONEX [Concomitant]
     Active Substance: MOMETASONE FUROATE
  37. VITAMIN D3 [Concomitant]
     Active Substance: CHOLECALCIFEROL
  38. VITAMIN D [Concomitant]
     Active Substance: CHOLECALCIFEROL
  39. ALLEGRA [Concomitant]
     Active Substance: FEXOFENADINE HYDROCHLORIDE
  40. COQ10 [Concomitant]
     Active Substance: UBIDECARENONE
  41. ZYLOPRIM [Concomitant]
     Active Substance: ALLOPURINOL
  42. NEURONTIN [Concomitant]
     Active Substance: GABAPENTIN

REACTIONS (16)
  - Chest discomfort [Unknown]
  - Neutrophil count abnormal [Unknown]
  - Rash [Recovered/Resolved]
  - Alopecia [Not Recovered/Not Resolved]
  - Gastritis [Unknown]
  - Contusion [Unknown]
  - Rash pustular [Unknown]
  - Cancer pain [Unknown]
  - Swelling face [Unknown]
  - White blood cell count decreased [Unknown]
  - Decreased appetite [Unknown]
  - Oesophageal discomfort [Unknown]
  - Oral fungal infection [Recovering/Resolving]
  - Folliculitis [Unknown]
  - Fluid intake reduced [Unknown]
  - Erythema [Unknown]

NARRATIVE: CASE EVENT DATE: 201805
